FAERS Safety Report 4307587-8 (Version None)
Quarter: 2004Q1

REPORT INFORMATION
  Report Type: 
  Country: None (occurrence: None)
  Receive Date: 20040225
  Receipt Date: 20031201
  Transmission Date: 20041129
  Serious: Yes (Disabling)
  Sender: FDA-Public Use
  Company Number: WAES 0312USA00241

PATIENT
  Age: 70 Year
  Sex: Male
  Weight: 114.3065 kg

DRUGS (12)
  1. ZOCOR [Suspect]
     Indication: BLOOD CHOLESTEROL INCREASED
     Dosage: 40 MG/PO; 80 MG/DAILY/PO
     Route: 048
     Dates: start: 20000401, end: 20010901
  2. ZOCOR [Suspect]
     Indication: LOW DENSITY LIPOPROTEIN INCREASED
     Dosage: 40 MG/PO; 80 MG/DAILY/PO
     Route: 048
     Dates: start: 20000401, end: 20010901
  3. ZOCOR [Suspect]
     Indication: BLOOD CHOLESTEROL INCREASED
     Dosage: 40 MG/PO; 80 MG/DAILY/PO
     Route: 048
     Dates: start: 20010901
  4. ZOCOR [Suspect]
     Indication: LOW DENSITY LIPOPROTEIN INCREASED
     Dosage: 40 MG/PO; 80 MG/DAILY/PO
     Route: 048
     Dates: start: 20010901
  5. AMARYL [Concomitant]
  6. AVANDIA [Concomitant]
  7. CELEBREX [Concomitant]
  8. ELAVIL [Concomitant]
  9. NEURONTIN [Concomitant]
  10. SULAR [Concomitant]
  11. VASOTEC [Concomitant]
  12. INSULIN [Concomitant]

REACTIONS (1)
  - MYOPATHY [None]
